FAERS Safety Report 16206394 (Version 1)
Quarter: 2019Q2

REPORT INFORMATION
  Report Type: Spontaneous
  Country: US (occurrence: US)
  Receive Date: 20190313
  Receipt Date: 20190313
  Transmission Date: 20190711
  Serious: Yes (Other)
  Sender: FDA-Public Use
  Company Number: None

PATIENT
  Age: 80 Year
  Sex: Male
  Weight: 87.09 kg

DRUGS (1)
  1. EYLEA [Suspect]
     Active Substance: AFLIBERCEPT
     Indication: MACULAR DEGENERATION
     Dosage: ?          OTHER FREQUENCY:EVERY 5 WEEKS;OTHER ROUTE:INTRAVITREAL?

REACTIONS (2)
  - Visual acuity reduced [None]
  - Uveitis [None]

NARRATIVE: CASE EVENT DATE: 20190228
